FAERS Safety Report 16830763 (Version 1)
Quarter: 2019Q3

REPORT INFORMATION
  Report Type: Spontaneous
  Country: CN (occurrence: CN)
  Receive Date: 20190920
  Receipt Date: 20190920
  Transmission Date: 20191005
  Serious: Yes (Other)
  Sender: FDA-Public Use
  Company Number: CN-BAXTER-2019BAX018259

PATIENT
  Age: 47 Year
  Sex: Female
  Weight: 42 kg

DRUGS (4)
  1. PHARMORUBICIN RD [Suspect]
     Active Substance: EPIRUBICIN
     Indication: BREAST CANCER FEMALE
     Dosage: FIRST CHEMOTHERAPY WITH PHARMORUBICIN RD + NS 100 ML
     Route: 041
     Dates: start: 20190809, end: 20190809
  2. 0.9% SODIUM CHLORIDE INJECTION [Suspect]
     Active Substance: SODIUM CHLORIDE
     Indication: MEDICATION DILUTION
     Dosage: FIRST CHEMOTHERAPY WITH ENDOXAN 780 MG + NS
     Route: 042
     Dates: start: 20190809, end: 20190809
  3. ENDOXAN [Suspect]
     Active Substance: CYCLOPHOSPHAMIDE
     Indication: BREAST CANCER FEMALE
     Dosage: FIRST CHEMOTHERAPY ENDOXAN + NS 40 ML
     Route: 042
     Dates: start: 20190809, end: 20190809
  4. 0.9% SODIUM CHLORIDE INJECTION [Suspect]
     Active Substance: SODIUM CHLORIDE
     Dosage: FIRST CHEMOTHERAPY WITH PHARMORUBICIN RD 108 MG + NS
     Route: 041
     Dates: start: 20190809, end: 20190809

REACTIONS (1)
  - Agranulocytosis [Recovered/Resolved]

NARRATIVE: CASE EVENT DATE: 20190816
